FAERS Safety Report 7278356-4 (Version None)
Quarter: 2011Q1

REPORT INFORMATION
  Report Type: 
  Country: None (occurrence: None)
  Receive Date: 20110202
  Receipt Date: 20110202
  Transmission Date: 20110831
  Serious: Yes (Other)
  Sender: FDA-Public Use
  Company Number: None

PATIENT
  Sex: Female

DRUGS (1)
  1. TRAMADOL HCL [Suspect]
     Indication: PAIN
     Dosage: 50MG EVERY 4-6 HRS PRN PO
     Route: 048
     Dates: start: 20101228, end: 20110124

REACTIONS (2)
  - NERVOUSNESS [None]
  - FORMICATION [None]
